FAERS Safety Report 5824662-7 (Version None)
Quarter: 2008Q3

REPORT INFORMATION
  Report Type: 
  Country: None (occurrence: None)
  Receive Date: 20080728
  Receipt Date: 20080723
  Transmission Date: 20090109
  Serious: Yes (Other)
  Sender: FDA-Public Use
  Company Number: JP-BRISTOL-MYERS SQUIBB COMPANY-14277289

PATIENT
  Sex: Female

DRUGS (3)
  1. TAXOL [Suspect]
     Indication: OVARIAN CANCER
     Route: 041
  2. PARAPLATIN [Suspect]
     Indication: OVARIAN CANCER
     Route: 041
  3. AVASTIN [Suspect]
     Indication: OVARIAN CANCER
     Route: 041

REACTIONS (1)
  - GASTROINTESTINAL PERFORATION [None]
